FAERS Safety Report 7352480-X (Version None)
Quarter: 2011Q1

REPORT INFORMATION
  Report Type: 
  Country: None (occurrence: None)
  Receive Date: 20110315
  Receipt Date: 20110307
  Transmission Date: 20110831
  Serious: Yes (Other)
  Sender: FDA-Public Use
  Company Number: US-ASTRAZENECA-2011SE12418

PATIENT
  Age: 92 Year
  Sex: Male

DRUGS (9)
  1. ASPIRIN [Suspect]
     Route: 065
  2. LISINOPRIL [Suspect]
     Route: 048
  3. HYDROCHLOROTHIAZIDE [Suspect]
     Route: 065
  4. PRILOSEC [Suspect]
     Route: 048
  5. AVODART [Suspect]
     Indication: BENIGN PROSTATIC HYPERPLASIA
     Route: 048
  6. FLOMAX [Suspect]
     Route: 065
  7. LIPITOR [Suspect]
     Route: 065
  8. COREG [Suspect]
     Route: 065
  9. TYLENOL [Suspect]
     Route: 065

REACTIONS (3)
  - SYNCOPE [None]
  - INAPPROPRIATE SCHEDULE OF DRUG ADMINISTRATION [None]
  - DIZZINESS [None]
